FAERS Safety Report 5025064-6 (Version None)
Quarter: 2006Q2

REPORT INFORMATION
  Report Type: 
  Country: None (occurrence: None)
  Receive Date: 20060608
  Receipt Date: 20060608
  Transmission Date: 20061013
  Serious: Yes (Other)
  Sender: FDA-Public Use
  Company Number: None

PATIENT
  Age: 73 Year
  Sex: Male
  Weight: 87.8164 kg

DRUGS (12)
  1. ALENDRONATE SODIUM [Suspect]
     Indication: OSTEOPOROSIS
     Dosage: 1 TAB Q WK
     Dates: start: 20050607
  2. AMIODARONE HCL [Concomitant]
  3. ASPIRIN [Concomitant]
  4. NEXIUM [Concomitant]
  5. FENTANYL [Concomitant]
  6. FUROSEMIDE [Concomitant]
  7. GABAPENTIN [Concomitant]
  8. METOCLOPRAMIDE [Concomitant]
  9. METROPOLOL [Concomitant]
  10. NIACIN [Concomitant]
  11. OXYCODONE AND ACETAMINOPHEN [Concomitant]
  12. SIMVASTATIN [Concomitant]

REACTIONS (4)
  - FOREIGN BODY TRAUMA [None]
  - INFLAMMATION [None]
  - OESOPHAGEAL STENOSIS [None]
  - ULCER [None]
